FAERS Safety Report 10469095 (Version 2)
Quarter: 2016Q1

REPORT INFORMATION
  Report Type: Report from Study
  Country: US (occurrence: US)
  Receive Date: 20140923
  Receipt Date: 20160311
  Transmission Date: 20160525
  Serious: Yes (Hospitalization)
  Sender: FDA-Public Use
  Company Number: US-ROCHE-1463163

PATIENT
  Age: 10 Year
  Sex: Male
  Weight: 39.6 kg

DRUGS (11)
  1. NUTROPIN AQ [Suspect]
     Active Substance: SOMATROPIN
     Route: 058
  2. SYNTHROID [Concomitant]
     Active Substance: LEVOTHYROXINE SODIUM
     Route: 048
  3. QNASL [Concomitant]
     Active Substance: BECLOMETHASONE DIPROPIONATE
     Route: 045
  4. KEFLEX [Concomitant]
     Active Substance: CEPHALEXIN
     Route: 048
  5. NUTROPIN AQ [Suspect]
     Active Substance: SOMATROPIN
     Indication: GROWTH HORMONE DEFICIENCY
     Route: 058
     Dates: start: 20100802, end: 201202
  6. HYDROCORTISONE. [Concomitant]
     Active Substance: HYDROCORTISONE
     Route: 048
  7. LEVOTHYROXINE. [Concomitant]
     Active Substance: LEVOTHYROXINE
     Route: 065
  8. ALLEGRA [Concomitant]
     Active Substance: FEXOFENADINE HYDROCHLORIDE
     Route: 048
  9. NUTROPIN AQ [Suspect]
     Active Substance: SOMATROPIN
     Route: 058
  10. NUTROPIN AQ [Suspect]
     Active Substance: SOMATROPIN
     Indication: HYPOPITUITARISM
     Route: 058
  11. NUTROPIN AQ [Suspect]
     Active Substance: SOMATROPIN
     Route: 058

REACTIONS (12)
  - Cough [Unknown]
  - Eczema [Unknown]
  - Pharyngitis streptococcal [Unknown]
  - Macule [Unknown]
  - Pharyngitis [Recovered/Resolved]
  - Dizziness [Unknown]
  - Headache [Unknown]
  - Adenoidectomy [Recovered/Resolved]
  - Nasal congestion [Unknown]
  - Back pain [Unknown]
  - Arthralgia [Unknown]
  - Tonsillectomy [Recovered/Resolved]

NARRATIVE: CASE EVENT DATE: 20120101
